FAERS Safety Report 9184325 (Version 1)
Quarter: 2012Q4

REPORT INFORMATION
  Report Type: 
  Country: US (occurrence: US)
  Receive Date: 20121031
  Receipt Date: 20121031
  Transmission Date: 20130627
  Serious: Yes (Death, Hospitalization, Other)
  Sender: FDA-Public Use
  Company Number: US-ELI_LILLY_AND_COMPANY-US201210008635

PATIENT
  Age: 69 Year
  Sex: Male

DRUGS (4)
  1. GEMCITABINE HYDROCHLORIDE [Suspect]
     Indication: PANCREATIC CARCINOMA NON-RESECTABLE
     Dosage: 200 mg/m2, weekly (1/W)
  2. CETUXIMAB [Concomitant]
     Indication: PANCREATIC CARCINOMA NON-RESECTABLE
     Dosage: 400 mg/m2, single
  3. CETUXIMAB [Concomitant]
     Dosage: 250 mg/m2, weekly (1/W)
  4. THERAPEUTIC RADIOPHARMACEUTICALS [Concomitant]
     Indication: PANCREATIC CARCINOMA NON-RESECTABLE

REACTIONS (9)
  - Pneumonia aspiration [Fatal]
  - Vomiting [Unknown]
  - Abdominal pain [Unknown]
  - Infection [Unknown]
  - Nausea [Unknown]
  - Platelet count decreased [Unknown]
  - Constipation [Unknown]
  - Ileus [Unknown]
  - Dermatitis acneiform [Unknown]
